FAERS Safety Report 7375876-9 (Version None)
Quarter: 2011Q1

REPORT INFORMATION
  Report Type: 
  Country: None (occurrence: None)
  Receive Date: 20110325
  Receipt Date: 20110318
  Transmission Date: 20110831
  Serious: Yes (Life-Threatening, Hospitalization)
  Sender: FDA-Public Use
  Company Number: A0919749A

PATIENT
  Age: 37 Year
  Sex: Male

DRUGS (2)
  1. SODIUM DIVALPROATE [Suspect]
     Route: 065
  2. LAMICTAL [Suspect]
     Dosage: 25MG PER DAY
     Route: 048
     Dates: start: 20100101

REACTIONS (1)
  - HEPATITIS TOXIC [None]
